FAERS Safety Report 6245416-6 (Version None)
Quarter: 2009Q2

REPORT INFORMATION
  Report Type: 
  Country: None (occurrence: None)
  Receive Date: 20090625
  Receipt Date: 20090522
  Transmission Date: 20091009
  Serious: No
  Sender: FDA-Public Use
  Company Number: US-BAYER-200911624BCC

PATIENT
  Age: 76 Year
  Sex: Male
  Weight: 72 kg

DRUGS (3)
  1. ALEVE (CAPLET) [Suspect]
     Indication: ARTHRALGIA
     Dosage: TOTAL DAILY DOSE: 110 MG  UNIT DOSE: 220 MG
     Route: 048
     Dates: start: 20090201
  2. ALEVE (CAPLET) [Suspect]
     Route: 048
     Dates: start: 20080101, end: 20080101
  3. ASPIRIN [Concomitant]
     Indication: DRUG USE FOR UNKNOWN INDICATION
     Route: 065

REACTIONS (1)
  - DYSPNOEA [None]
